FAERS Safety Report 7337089-6 (Version None)
Quarter: 2011Q1

REPORT INFORMATION
  Report Type: 
  Country: None (occurrence: None)
  Receive Date: 20110308
  Receipt Date: 20110224
  Transmission Date: 20110831
  Serious: Yes (Other)
  Sender: FDA-Public Use
  Company Number: PHHY2011ZA15504

PATIENT
  Sex: Female

DRUGS (2)
  1. RITALIN [Suspect]
     Dosage: 10 MG IN MORNING AND 5 MG IN AFTERNOON
     Dates: start: 20090601
  2. DESELEX [Concomitant]
     Dosage: 10 MG AT NIGHT

REACTIONS (1)
  - VISUAL IMPAIRMENT [None]
